FAERS Safety Report 8356244-X (Version None)
Quarter: 2012Q2

REPORT INFORMATION
  Report Type: 
  Country: None (occurrence: None)
  Receive Date: 20120514
  Receipt Date: 20120503
  Transmission Date: 20120825
  Serious: Yes (Hospitalization)
  Sender: FDA-Public Use
  Company Number: US-US-EMD SERONO, INC.-235950K07USA

PATIENT
  Sex: Female

DRUGS (9)
  1. OMEPRAZOLE [Concomitant]
     Indication: GASTROOESOPHAGEAL REFLUX DISEASE
  2. TEGRETOL [Concomitant]
     Indication: CONVULSION
  3. REBIF [Suspect]
     Indication: MULTIPLE SCLEROSIS
     Route: 058
     Dates: start: 20040625
  4. BENICAR [Concomitant]
     Indication: PRODUCT USED FOR UNKNOWN INDICATION
     Route: 065
  5. TRIAMTERENE [Concomitant]
     Indication: PRODUCT USED FOR UNKNOWN INDICATION
     Route: 065
  6. REBIF [Suspect]
     Route: 058
     Dates: start: 20070101
  7. TYLENOL ARTHRITIS [Concomitant]
     Indication: DRUG THERAPY
     Route: 065
  8. HYDROCHLOROTHIAZIDE [Concomitant]
     Indication: PRODUCT USED FOR UNKNOWN INDICATION
     Route: 065
  9. REBIF [Suspect]
     Route: 058
     Dates: start: 20070115

REACTIONS (7)
  - INTERVERTEBRAL DISC PROTRUSION [None]
  - THROMBOSIS [None]
  - GRAND MAL CONVULSION [None]
  - JOINT INJURY [None]
  - HEPATIC ENZYME INCREASED [None]
  - POSTERIOR REVERSIBLE ENCEPHALOPATHY SYNDROME [None]
  - PHARYNGEAL HAEMATOMA [None]
